FAERS Safety Report 13486316 (Version 1)
Quarter: 2017Q2

REPORT INFORMATION
  Report Type: Spontaneous
  Country: IR (occurrence: IR)
  Receive Date: 20170426
  Receipt Date: 20170426
  Transmission Date: 20170830
  Serious: Yes (Other)
  Sender: FDA-Public Use
  Company Number: IR-MYLANLABS-2017M1025371

PATIENT

DRUGS (1)
  1. MITOXANTRONE [Suspect]
     Active Substance: MITOXANTRONE HYDROCHLORIDE
     Indication: MULTIPLE SCLEROSIS
     Dosage: RECEIVED TWO CYCLES; TWO YEARS AGO
     Route: 065

REACTIONS (2)
  - Endometrial disorder [Unknown]
  - Endometriosis [Unknown]
